FAERS Safety Report 13671069 (Version 1)
Quarter: 2017Q2

REPORT INFORMATION
  Report Type: Spontaneous
  Country: US (occurrence: US)
  Receive Date: 20170620
  Receipt Date: 20170620
  Transmission Date: 20170830
  Serious: No
  Sender: FDA-Public Use
  Company Number: US-ROCHE-1349787

PATIENT
  Sex: Female
  Weight: 53.7 kg

DRUGS (2)
  1. XELODA [Suspect]
     Active Substance: CAPECITABINE
     Indication: COLON CANCER
     Dosage: EVERY MORNING
     Route: 048
     Dates: start: 20140110
  2. XELODA [Suspect]
     Active Substance: CAPECITABINE
     Dosage: EVERY EVENING
     Route: 048
     Dates: start: 20140110

REACTIONS (1)
  - Palmar-plantar erythrodysaesthesia syndrome [Not Recovered/Not Resolved]
